FAERS Safety Report 10229375 (Version 1)
Quarter: 2014Q2

REPORT INFORMATION
  Report Type: Spontaneous
  Country: US (occurrence: US)
  Receive Date: 20140611
  Receipt Date: 20140611
  Transmission Date: 20141212
  Serious: Yes (Other)
  Sender: FDA-Public Use
  Company Number: US-BRISTOL-MYERS SQUIBB COMPANY-20937033

PATIENT
  Age: 62 Year
  Sex: Female

DRUGS (1)
  1. ABILIFY TABS [Suspect]
     Indication: BIPOLAR DISORDER
     Dosage: 1DF: 20MG OR 30MG
     Dates: start: 2005

REACTIONS (3)
  - Nephropathy [Recovering/Resolving]
  - Back disorder [Not Recovered/Not Resolved]
  - Urinary incontinence [Unknown]
